FAERS Safety Report 6737979-9 (Version None)
Quarter: 2010Q2

REPORT INFORMATION
  Report Type: 
  Country: None (occurrence: None)
  Receive Date: 20100521
  Receipt Date: 20100521
  Transmission Date: 20101027
  Serious: Yes (Other)
  Sender: FDA-Public Use
  Company Number: None

PATIENT
  Age: 47 Year
  Sex: Female
  Weight: 97.5 kg

DRUGS (2)
  1. GEODON [Suspect]
     Indication: MENTAL DISORDER
     Dosage: 40 MG PO BID WITH FOOD ^STARTED RECENTLY^
  2. SERTRALINE HCL [Concomitant]

REACTIONS (2)
  - EXTRAPYRAMIDAL DISORDER [None]
  - MENTAL STATUS CHANGES [None]
